FAERS Safety Report 15689535 (Version 1)
Quarter: 2018Q4

REPORT INFORMATION
  Report Type: Spontaneous
  Country: US (occurrence: US)
  Receive Date: 20181125
  Receipt Date: 20181125
  Transmission Date: 20190205
  Serious: Yes (Other)
  Sender: FDA-Public Use
  Company Number: None

PATIENT
  Age: 4 Year
  Sex: Male
  Weight: 18 kg

DRUGS (2)
  1. CITRIZINE [Concomitant]
  2. TAMIFLU [Suspect]
     Active Substance: OSELTAMIVIR PHOSPHATE
     Indication: INFLUENZA
     Route: 048
     Dates: start: 20181118, end: 20181120

REACTIONS (11)
  - Skin reaction [None]
  - Eye pruritus [None]
  - Lethargy [None]
  - Ocular hyperaemia [None]
  - Chapped lips [None]
  - Decreased appetite [None]
  - Wheezing [None]
  - Lacrimation increased [None]
  - Exfoliative rash [None]
  - Erythema [None]
  - Swelling [None]

NARRATIVE: CASE EVENT DATE: 20181119
